FAERS Safety Report 9236285 (Version 6)
Quarter: 2014Q2

REPORT INFORMATION
  Report Type: Report from Study
  Country: JP (occurrence: JP)
  Receive Date: 20130417
  Receipt Date: 20140624
  Transmission Date: 20141212
  Serious: Yes (Life-Threatening, Hospitalization)
  Sender: FDA-Public Use
  Company Number: JP-PFIZER INC-2013116697

PATIENT
  Age: 68 Year
  Sex: Female
  Weight: 64 kg

DRUGS (15)
  1. XALKORI [Suspect]
     Indication: NON-SMALL CELL LUNG CANCER
     Dosage: 250 MG, 2X/DAY
     Route: 048
     Dates: start: 20130315, end: 20130317
  2. XALKORI [Suspect]
     Dosage: 250 MG, 2X/DAY
     Route: 048
     Dates: start: 20130322, end: 20130409
  3. MAGMITT [Concomitant]
     Dosage: 500 MG, 3X/DAY
     Route: 048
  4. CRESTOR [Concomitant]
     Dosage: 2.5 MG, 1X/DAY
     Route: 048
  5. OMEPRAL [Concomitant]
     Dosage: 10 MG, 1X/DAY
     Route: 048
  6. NAUZELIN [Concomitant]
     Dosage: 10 MG, 3X/DAY
     Route: 048
  7. HYPEN [Concomitant]
     Dosage: 200 MG, 2X/DAY
     Route: 048
  8. MICAMLO AP [Concomitant]
     Dosage: 1X/DAY
     Route: 048
  9. NORVASC [Concomitant]
     Dosage: 5 MG, 1X/DAY
     Route: 048
  10. LASIX [Concomitant]
     Dosage: 20 MG, 1X/DAY
     Route: 048
  11. DECADRON [Concomitant]
     Dosage: 0.5 MG, 1X/DAY
     Route: 048
  12. RESTAMIN [Concomitant]
     Dosage: 10 MG, 1X/DAY
     Route: 048
  13. NASEA [Concomitant]
     Dosage: 0.1 MG, 1X/DAY
     Route: 048
  14. LENDORMIN [Concomitant]
     Dosage: 0.25 MG, AS NEEDED
     Route: 048
  15. DENOTAS [Concomitant]
     Dosage: UNK
     Route: 048

REACTIONS (2)
  - Interstitial lung disease [Recovered/Resolved]
  - Pleural effusion [Recovered/Resolved]
